FAERS Safety Report 7569225-0 (Version None)
Quarter: 2011Q2

REPORT INFORMATION
  Report Type: 
  Country: None (occurrence: None)
  Receive Date: 20110623
  Receipt Date: 20110614
  Transmission Date: 20111010
  Serious: Yes (Other)
  Sender: FDA-Public Use
  Company Number: PHHY2011CH52332

PATIENT
  Age: 51 Year
  Sex: Female

DRUGS (2)
  1. MIACALCIN [Suspect]
     Indication: COMPLEX REGIONAL PAIN SYNDROME
     Dosage: UNK
     Dates: start: 20100801, end: 20100901
  2. MIACALCIN [Suspect]
     Dosage: UNK
     Dates: start: 20110401, end: 20110601

REACTIONS (1)
  - OVARIAN CYST [None]
